FAERS Safety Report 23574446 (Version 3)
Quarter: 2024Q4

REPORT INFORMATION
  Report Type: Report from Study
  Country: IN (occurrence: IN)
  Receive Date: 20240228
  Receipt Date: 20241213
  Transmission Date: 20250115
  Serious: Yes (Hospitalization)
  Sender: TAKEDA
  Company Number: IN-TAKEDA-2024TUS018192

PATIENT
  Sex: Female

DRUGS (1)
  1. VEDOLIZUMAB [Suspect]
     Active Substance: VEDOLIZUMAB
     Indication: Crohn^s disease
     Dosage: 300 MILLIGRAM

REACTIONS (4)
  - Frequent bowel movements [Unknown]
  - Drug effect less than expected [Unknown]
  - Infection [Unknown]
  - Inappropriate schedule of product administration [Unknown]
